FAERS Safety Report 8345723-7 (Version None)
Quarter: 2012Q2

REPORT INFORMATION
  Report Type: 
  Country: None (occurrence: None)
  Receive Date: 20120508
  Receipt Date: 20120425
  Transmission Date: 20120825
  Serious: Yes (Other)
  Sender: FDA-Public Use
  Company Number: US-ELI_LILLY_AND_COMPANY-US201111004861

PATIENT
  Sex: Female
  Weight: 60.317 kg

DRUGS (16)
  1. NEXIUM [Concomitant]
     Indication: GASTROOESOPHAGEAL REFLUX DISEASE
     Dosage: 40 MG, EACH EVENING
  2. METOPROLOL TARTRATE [Concomitant]
     Dosage: 50 MG, QD
  3. FORTEO [Suspect]
     Dosage: 20 UG, QD
     Route: 058
  4. CLONAZEPAM [Concomitant]
     Dosage: 1 MG, EACH EVENING
  5. MTV [Concomitant]
  6. IBUPROFEN TABLETS [Concomitant]
     Dosage: 200 MG, PRN
  7. PRILOSEC [Concomitant]
     Indication: GASTROOESOPHAGEAL REFLUX DISEASE
  8. COLCHICINE [Concomitant]
     Dosage: 0.6 MG, 3/W
  9. IMIPRAMINE [Concomitant]
     Dosage: 2 DF, EACH EVENING
  10. FORTEO [Suspect]
     Indication: OSTEOPOROSIS
     Dosage: 20 UG, QD
     Route: 058
  11. FORTEO [Suspect]
     Dosage: 20 UG, QD
     Route: 058
  12. CYMBALTA [Concomitant]
     Dosage: 60 MG, QD
  13. IMURAN [Concomitant]
     Dosage: 75 MG, QD
  14. SYNTHROID [Concomitant]
     Dosage: 1.25 MG, QD
  15. FORTEO [Suspect]
     Dosage: 20 UG, QD
     Route: 058
  16. FORTEO [Suspect]
     Dosage: 20 UG, QD
     Route: 058

REACTIONS (12)
  - ASTHENIA [None]
  - EXPIRED DRUG ADMINISTERED [None]
  - BALANCE DISORDER [None]
  - GLAUCOMA [None]
  - MYALGIA [None]
  - PAIN [None]
  - ARTHRALGIA [None]
  - FEELING ABNORMAL [None]
  - DIZZINESS [None]
  - DISEASE PROGRESSION [None]
  - FATIGUE [None]
  - SOMNOLENCE [None]
